FAERS Safety Report 19933367 (Version 1)
Quarter: 2021Q4

REPORT INFORMATION
  Report Type: Spontaneous
  Country: JP (occurrence: JP)
  Receive Date: 20211008
  Receipt Date: 20211008
  Transmission Date: 20220304
  Serious: Yes (Other)
  Sender: FDA-Public Use
  Company Number: JP-MALLINCKRODT PHARMACEUTICALS-T202104611

PATIENT
  Weight: 3 kg

DRUGS (4)
  1. NITRIC OXIDE [Suspect]
     Active Substance: NITRIC OXIDE
     Indication: Pulmonary hypertensive crisis
     Dosage: 20 PPM, (INHALATION)
     Route: 055
  2. EPINEPHRINE [Concomitant]
     Active Substance: EPINEPHRINE
     Indication: Low cardiac output syndrome
     Dosage: UNK, 0.02 ?
     Route: 065
  3. DOBUTAMINE [Concomitant]
     Active Substance: DOBUTAMINE HYDROCHLORIDE
     Indication: Low cardiac output syndrome
     Dosage: UNK, 5 ?
     Route: 065
  4. MILRINONE [Concomitant]
     Active Substance: MILRINONE
     Indication: Pulmonary hypertensive crisis
     Dosage: UNK, 0.2 ?
     Route: 065

REACTIONS (4)
  - Tracheal haemorrhage [Unknown]
  - Pulmonary haemorrhage neonatal [Recovered/Resolved]
  - Cerebral haemorrhage neonatal [Unknown]
  - Hypercapnia [Unknown]
